FAERS Safety Report 23350379 (Version 1)
Quarter: 2023Q4

REPORT INFORMATION
  Report Type: Spontaneous
  Country: CA (occurrence: None)
  Receive Date: 20231229
  Receipt Date: 20231229
  Transmission Date: 20240109
  Serious: Yes (Other)
  Sender: FDA-Public Use
  Company Number: CA-ROCHE-3478678

PATIENT
  Sex: Female

DRUGS (2)
  1. AVASTIN [Suspect]
     Active Substance: BEVACIZUMAB
     Indication: Neovascular age-related macular degeneration
     Dosage: NO
     Route: 065
  2. LUCENTIS [Suspect]
     Active Substance: RANIBIZUMAB
     Indication: Neovascular age-related macular degeneration
     Route: 065

REACTIONS (10)
  - Blindness [Unknown]
  - Migraine [Unknown]
  - Intraocular pressure increased [Unknown]
  - Visual impairment [Unknown]
  - Iris injury [Unknown]
  - Off label use [Unknown]
  - Thyroid disorder [Unknown]
  - Glaucoma [Unknown]
  - Anxiety [Unknown]
  - Eye disorder [Unknown]
